FAERS Safety Report 11559718 (Version 3)
Quarter: 2016Q1

REPORT INFORMATION
  Report Type: Report from Study
  Country: US (occurrence: US)
  Receive Date: 20150928
  Receipt Date: 20160229
  Transmission Date: 20160525
  Serious: Yes (Other)
  Sender: FDA-Public Use
  Company Number: US-AMGEN-USASP2015097935

PATIENT
  Age: 68 Year
  Sex: Male

DRUGS (3)
  1. ENBREL [Suspect]
     Active Substance: ETANERCEPT
     Indication: RHEUMATOID ARTHRITIS
     Dosage: 50 MG, QWK
     Route: 065
     Dates: start: 20141013
  2. VIT B-6 [Concomitant]
     Dosage: UNK
  3. ENBREL [Suspect]
     Active Substance: ETANERCEPT
     Dosage: UNK
     Route: 065

REACTIONS (13)
  - Memory impairment [Unknown]
  - Injection site haemorrhage [Unknown]
  - Amputation [Unknown]
  - Lacrimation increased [Unknown]
  - Rhinorrhoea [Unknown]
  - Injection site pain [Unknown]
  - Tuberculosis [Unknown]
  - Device issue [Unknown]
  - Nasopharyngitis [Unknown]
  - Injection site extravasation [Unknown]
  - Gout [Unknown]
  - Accidental overdose [Unknown]
  - Dizziness [Unknown]

NARRATIVE: CASE EVENT DATE: 201508
